FAERS Safety Report 7617098-X (Version None)
Quarter: 2011Q3

REPORT INFORMATION
  Report Type: 
  Country: None (occurrence: None)
  Receive Date: 20110718
  Receipt Date: 20110607
  Transmission Date: 20111222
  Serious: No
  Sender: FDA-Public Use
  Company Number: US-BAYER-2011-059394

PATIENT
  Sex: Female

DRUGS (2)
  1. YAZ [Suspect]
     Indication: PREMENSTRUAL SYNDROME
     Dosage: UNK
     Dates: start: 20050101, end: 20050101
  2. YAZ [Suspect]
     Dosage: UNK
     Dates: start: 20080801

REACTIONS (3)
  - WEIGHT INCREASED [None]
  - PAIN IN EXTREMITY [None]
  - SPIDER VEIN [None]
